FAERS Safety Report 7596678-4 (Version None)
Quarter: 2011Q3

REPORT INFORMATION
  Report Type: 
  Country: None (occurrence: None)
  Receive Date: 20110708
  Receipt Date: 20110627
  Transmission Date: 20111222
  Serious: Yes (Hospitalization, Other)
  Sender: FDA-Public Use
  Company Number: US-ELI_LILLY_AND_COMPANY-US201008006635

PATIENT
  Sex: Female

DRUGS (32)
  1. FORTEO [Suspect]
     Indication: OSTEOPOROSIS
     Dosage: 20 UG, DAILY (1/D)
     Route: 065
  2. PREDNISONE [Concomitant]
     Dosage: 10 MG, DAILY (1/D)
  3. OPANA [Concomitant]
  4. FISH OIL [Concomitant]
  5. LEVOTHYROXINE SODIUM [Concomitant]
     Dosage: 50 UG, DAILY (1/D)
  6. DILAUDID [Concomitant]
     Indication: PAIN
     Dosage: 4 MG, EVERY 4 HRS
  7. DILAUDID [Concomitant]
     Dosage: 4 MG, EVERY 6 HRS
  8. PROVIGIL [Concomitant]
     Dosage: 200 MG, 2/D
  9. SPIRIVA [Concomitant]
     Dosage: 18 UG, 2/D
  10. CHANTIX [Concomitant]
     Dosage: 1 MG, 2/D
  11. CLOTRIMAZOLE [Concomitant]
     Dosage: 10 MG, 4/D
  12. ALBUTEROL [Concomitant]
     Dosage: UNK, AS NEEDED
  13. FORTEO [Suspect]
     Dosage: 20 UG, DAILY (1/D)
     Route: 065
  14. NAMENDA [Concomitant]
     Dosage: 10 MG, 2/D
  15. CYCLOBENZAPRINE [Concomitant]
     Dosage: 10 MG, 3/D
  16. SYMBICORT [Concomitant]
     Dosage: 160 UG, 2/D
  17. BUMETANIDE [Concomitant]
     Dosage: 0.5 MG, DAILY (1/D)
  18. FORTEO [Suspect]
     Dosage: 20 UG, QD
  19. OMEPRAZOLE [Concomitant]
     Dosage: 20 MG, 2/D
  20. CALCIUM CARBONATE [Concomitant]
  21. FORTEO [Suspect]
     Dosage: 20 UG, DAILY (1/D)
     Route: 065
  22. POTASSIUM [Concomitant]
  23. FLUOXETINE HCL [Concomitant]
  24. ALBUTEROL SULFATE AUTOHALER [Concomitant]
     Dosage: UNK, AS NEEDED
  25. TOVIAZ [Concomitant]
  26. VITAMIN D [Concomitant]
  27. COPAXONE [Concomitant]
  28. LACTULOSE [Concomitant]
     Dosage: 30 MG, 2/D
  29. SYMBICORT [Concomitant]
     Dosage: 4.5 UG, 2/D
  30. ROPINIROLE [Concomitant]
     Dosage: 0.25 D/F, DAILY (1/D)
  31. KLOR-CON [Concomitant]
     Dosage: 10 MEQ, AS NEEDED
  32. FENTANYL [Concomitant]
     Indication: PAIN
     Dosage: 75 UG, OTHER

REACTIONS (10)
  - INTERVERTEBRAL DISC PROTRUSION [None]
  - DIZZINESS [None]
  - MALIGNANT MELANOMA [None]
  - PNEUMONIA FUNGAL [None]
  - CONVULSION [None]
  - CATARACT [None]
  - VOMITING [None]
  - MALAISE [None]
  - SPINAL DISORDER [None]
  - ANKYLOSING SPONDYLITIS [None]
